FAERS Safety Report 8573595-4 (Version None)
Quarter: 2012Q3

REPORT INFORMATION
  Report Type: 
  Country: None (occurrence: None)
  Receive Date: 20120806
  Receipt Date: 20120727
  Transmission Date: 20120928
  Serious: Yes (Other)
  Sender: FDA-Public Use
  Company Number: JP-VERTEX PHARMACEUTICALS INC.-AE-2012-009264

PATIENT
  Age: 63 Year
  Sex: Female

DRUGS (9)
  1. REBETOL [Concomitant]
     Indication: HEPATITIS C
     Route: 048
     Dates: start: 20120418, end: 20120515
  2. PEGINTERFERON ALFA-2B [Concomitant]
     Route: 058
     Dates: start: 20120509, end: 20120515
  3. REBETOL [Concomitant]
     Route: 048
     Dates: start: 20120711
  4. PEGINTERFERON ALFA-2B [Concomitant]
     Indication: HEPATITIS C
     Route: 058
     Dates: start: 20120418, end: 20120508
  5. PEGINTERFERON ALFA-2B [Concomitant]
     Route: 058
     Dates: start: 20120516
  6. TELAVIC (TELAPREVIR) [Suspect]
     Route: 048
     Dates: start: 20120509
  7. REBETOL [Concomitant]
     Route: 048
     Dates: start: 20120516, end: 20120529
  8. DEMUNATTO [Concomitant]
     Route: 048
  9. TELAVIC (TELAPREVIR) [Suspect]
     Indication: HEPATITIS C
     Route: 048
     Dates: start: 20120418, end: 20120508

REACTIONS (1)
  - WHITE BLOOD CELL COUNT DECREASED [None]
